FAERS Safety Report 8869006 (Version 1)
Quarter: 2012Q4

REPORT INFORMATION
  Report Type: 
  Country: US (occurrence: US)
  Receive Date: 20121023
  Receipt Date: 20121023
  Transmission Date: 20130627
  Serious: No
  Sender: FDA-Public Use
  Company Number: US-AMGEN-USASP2012055427

PATIENT
  Age: 52 Year
  Sex: Male
  Weight: 142.86 kg

DRUGS (8)
  1. ENBREL [Suspect]
     Indication: RHEUMATOID ARTHRITIS
     Dosage: 50 mg, qwk
     Route: 058
  2. MIRTAZAPINE [Concomitant]
     Dosage: 15 mg, UNK
  3. COUMADIN                           /00014802/ [Concomitant]
     Dosage: 1 mg, UNK
  4. VISTARIL /00058402/ [Concomitant]
     Dosage: 25 mg, UNK
  5. GABAPENTIN [Concomitant]
     Dosage: 100 mg, UNK
  6. CALCIUM 600 [Concomitant]
     Dosage: 600 UNK, UNK
  7. FISH OIL [Concomitant]
     Dosage: UNK
  8. TRIPLEFLEX [Concomitant]
     Dosage: UNK

REACTIONS (3)
  - Hypoaesthesia [Unknown]
  - Dizziness [Recovering/Resolving]
  - Injection site bruising [Recovering/Resolving]
